FAERS Safety Report 4632524-6 (Version None)
Quarter: 2005Q2

REPORT INFORMATION
  Report Type: 
  Country: None (occurrence: None)
  Receive Date: 20050411
  Receipt Date: 20050324
  Transmission Date: 20051028
  Serious: Yes (Hospitalization)
  Sender: FDA-Public Use
  Company Number: IBF20050013

PATIENT
  Age: 21 Year

DRUGS (1)
  1. IBUPROFEN [Suspect]
     Dosage: 8 G  ONCE PO
     Route: 048
     Dates: start: 20040101, end: 20040101

REACTIONS (5)
  - AMNIOTIC FLUID VOLUME DECREASED [None]
  - COAGULATION TIME PROLONGED [None]
  - DRUG EXPOSURE DURING PREGNANCY [None]
  - INDUCED LABOUR [None]
  - OVERDOSE [None]
